FAERS Safety Report 4318523-2 (Version None)
Quarter: 2004Q1

REPORT INFORMATION
  Report Type: 
  Country: None (occurrence: None)
  Receive Date: 20040318
  Receipt Date: 20040310
  Transmission Date: 20041129
  Serious: Yes (Death)
  Sender: FDA-Public Use
  Company Number: PHBS2004JP03304

PATIENT
  Age: 67 Year
  Sex: Male
  Weight: 70 kg

DRUGS (8)
  1. PARLODEL [Suspect]
     Dosage: 2.5 MG, UNK
     Route: 048
     Dates: start: 20040223, end: 20040228
  2. SYMMETREL [Suspect]
     Dosage: 100 MG, UNK
     Route: 048
     Dates: start: 20040223, end: 20040228
  3. EXCEGRAN [Suspect]
     Dosage: 200 MG, UNK
     Route: 048
     Dates: start: 20040223, end: 20040228
  4. SELBEX [Concomitant]
     Dosage: 150 MG, UNK
     Route: 048
     Dates: start: 20040223, end: 20040228
  5. SERMION [Suspect]
     Dosage: 15 MG, UNK
     Route: 048
     Dates: start: 20040223, end: 20040228
  6. HIRTONIN [Concomitant]
     Dosage: 2 MG, UNK
     Route: 042
     Dates: start: 20040223, end: 20040228
  7. PREDNISOLONE [Concomitant]
  8. ACINON [Concomitant]

REACTIONS (1)
  - CARDIAC ARREST [None]
